FAERS Safety Report 5017943-0 (Version None)
Quarter: 2006Q2

REPORT INFORMATION
  Report Type: 
  Country: None (occurrence: None)
  Receive Date: 20060605
  Receipt Date: 20060531
  Transmission Date: 20061013
  Serious: Yes (Other)
  Sender: FDA-Public Use
  Company Number: CA-GLAXOSMITHKLINE-A0607804A

PATIENT
  Sex: Male

DRUGS (4)
  1. WELLBUTRIN SR [Suspect]
     Indication: DRUG USE FOR UNKNOWN INDICATION
     Dosage: 700MG UNKNOWN
     Route: 065
  2. LITHIUM CARBONATE [Suspect]
     Indication: DRUG USE FOR UNKNOWN INDICATION
     Dosage: 4.2G UNKNOWN
     Route: 065
  3. GABAPENTIN [Suspect]
     Indication: DRUG USE FOR UNKNOWN INDICATION
     Dosage: 2.1G UNKNOWN
     Route: 065
  4. RISPERDAL [Suspect]
     Indication: DRUG USE FOR UNKNOWN INDICATION
     Dosage: 7MG UNKNOWN
     Route: 065

REACTIONS (5)
  - CONFUSIONAL STATE [None]
  - DYSARTHRIA [None]
  - INTENTIONAL OVERDOSE [None]
  - SOMNOLENCE [None]
  - TREMOR [None]
